FAERS Safety Report 21422520 (Version 1)
Quarter: 2022Q4

REPORT INFORMATION
  Report Type: Spontaneous
  Country: US (occurrence: US)
  Receive Date: 20221007
  Receipt Date: 20221007
  Transmission Date: 20230112
  Serious: No
  Sender: FDA-Public Use
  Company Number: US-009507513-2210USA000914

PATIENT
  Sex: Female

DRUGS (2)
  1. TRUSOPT [Suspect]
     Active Substance: DORZOLAMIDE HYDROCHLORIDE
     Dosage: UNK
  2. DORZOLAMIDE [Suspect]
     Active Substance: DORZOLAMIDE
     Dosage: 1 DROP PER EYE/ 2X DAILY

REACTIONS (2)
  - Intraocular pressure increased [Unknown]
  - Eye irritation [Unknown]

NARRATIVE: CASE EVENT DATE: 20120101
